FAERS Safety Report 11109642 (Version 2)
Quarter: 2015Q2

REPORT INFORMATION
  Report Type: Report from Study
  Country: US (occurrence: US)
  Receive Date: 20150513
  Receipt Date: 20150626
  Transmission Date: 20150821
  Serious: Yes (Other)
  Sender: FDA-Public Use
  Company Number: US-ELI_LILLY_AND_COMPANY-US201505000612

PATIENT
  Age: 70 Year
  Sex: Female

DRUGS (7)
  1. OXYCODONE [Concomitant]
     Active Substance: OXYCODONE
  2. ISOSORBIDE [Concomitant]
     Active Substance: ISOSORBIDE
  3. CALCIUM [Concomitant]
     Active Substance: CALCIUM
  4. DIAZEPAM. [Concomitant]
     Active Substance: DIAZEPAM
  5. TERIPARATIDE [Suspect]
     Active Substance: TERIPARATIDE
     Indication: OSTEOPOROSIS
     Dosage: 20 UG, QD
     Route: 058
     Dates: start: 20150424, end: 20150505
  6. ROBAXIN [Concomitant]
     Active Substance: METHOCARBAMOL
  7. IRON [Concomitant]
     Active Substance: IRON

REACTIONS (3)
  - Dyspnoea [Recovering/Resolving]
  - Muscle spasms [Recovering/Resolving]
  - Back pain [Recovering/Resolving]

NARRATIVE: CASE EVENT DATE: 20150425
